FAERS Safety Report 13945405 (Version 1)
Quarter: 2017Q3

REPORT INFORMATION
  Report Type: Spontaneous
  Country: CN (occurrence: CN)
  Receive Date: 20170907
  Receipt Date: 20170907
  Transmission Date: 20171128
  Serious: Yes (Hospitalization)
  Sender: FDA-Public Use
  Company Number: PHHY2017CN130185

PATIENT
  Age: 42 Year
  Sex: Male
  Weight: 63 kg

DRUGS (2)
  1. MYCOPHENOLATE [Suspect]
     Active Substance: MYCOPHENOLIC ACID
     Indication: RENAL TRANSPLANT
     Dosage: 900 MG, (540 MG IN THE MORNING, 360 MG AT NIGHT)
     Route: 048
     Dates: start: 20161210, end: 20170117
  2. MYCOPHENOLATE [Suspect]
     Active Substance: MYCOPHENOLIC ACID
     Indication: KIDNEY TRANSPLANT REJECTION
     Dosage: 720 MG, (360 MG IN THE MORNING AND 360 MG AT NIGHT)
     Route: 048

REACTIONS (1)
  - Bone marrow failure [Recovering/Resolving]

NARRATIVE: CASE EVENT DATE: 20170117
